FAERS Safety Report 9690262 (Version 1)
Quarter: 2013Q4

REPORT INFORMATION
  Report Type: Spontaneous
  Country: US (occurrence: US)
  Receive Date: 20131115
  Receipt Date: 20131115
  Transmission Date: 20140711
  Serious: Yes (Death, Other)
  Sender: FDA-Public Use
  Company Number: US-ASTRAZENECA-2013SE83310

PATIENT
  Age: 83 Year
  Sex: Male

DRUGS (1)
  1. PRILOSEC [Suspect]
     Route: 048
     Dates: start: 2013, end: 2013

REACTIONS (5)
  - Death [Fatal]
  - Cerebrovascular accident [Unknown]
  - Thyroid neoplasm [Unknown]
  - Neoplasm progression [Unknown]
  - Dyspepsia [Unknown]
